FAERS Safety Report 11838434 (Version 4)
Quarter: 2016Q1

REPORT INFORMATION
  Report Type: Spontaneous
  Country: JP (occurrence: JP)
  Receive Date: 20151215
  Receipt Date: 20160329
  Transmission Date: 20160525
  Serious: Yes (Hospitalization, Other)
  Sender: FDA-Public Use
  Company Number: JP-GILEAD-2015-0187688

PATIENT
  Age: 84 Year
  Sex: Female
  Weight: 49 kg

DRUGS (17)
  1. LANTUS [Concomitant]
     Active Substance: INSULIN GLARGINE
     Indication: DIABETES MELLITUS
     Dosage: 4 UNIT, UNK
     Route: 058
  2. DIAZEPAM. [Concomitant]
     Active Substance: DIAZEPAM
     Dosage: 1 DF, QHS
     Route: 048
     Dates: start: 201512
  3. SANCOBA [Concomitant]
     Active Substance: CYANOCOBALAMIN
     Indication: ASTHENOPIA
     Dosage: 4 TO 8 DROPS, QID
     Route: 031
     Dates: start: 20150625
  4. COPEGUS [Suspect]
     Active Substance: RIBAVIRIN
     Indication: CHRONIC HEPATITIS C
     Dosage: 200 MG, BID
     Route: 048
     Dates: start: 20150910, end: 20151125
  5. ALLOPURINOL. [Concomitant]
     Active Substance: ALLOPURINOL
     Indication: HYPERURICAEMIA
     Dosage: 50 MG, UNK
     Route: 048
     Dates: start: 20150924
  6. LIMAPROST ALFADEX [Concomitant]
     Active Substance: LIMAPROST
     Indication: LUMBAR SPINAL STENOSIS
     Dosage: 5 UG, TID
     Route: 048
     Dates: start: 20130313
  7. TRESIBA [Concomitant]
     Active Substance: INSULIN DEGLUDEC
     Indication: DIABETES MELLITUS
     Dosage: 7 UNITS
     Route: 058
     Dates: start: 20130716
  8. NEUROTROPIN                        /00398601/ [Concomitant]
     Active Substance: CYANOCOBALAMIN\LIDOCAINE HYDROCHLORIDE\PYRIDOXINE HYDROCHLORIDE\THIAMINE HYDROCHLORIDE
     Indication: LUMBAR SPINAL STENOSIS
     Dosage: 3 DF, UNK
     Route: 048
     Dates: start: 20130109
  9. DUOTRAV [Concomitant]
     Active Substance: TIMOLOL MALEATE\TRAVOPROST
     Indication: GLAUCOMA
     Dosage: 1 DROP, ONCE A DAY
     Route: 031
     Dates: start: 20130704
  10. SOVALDI [Suspect]
     Active Substance: SOFOSBUVIR
     Dosage: 400 MG, UNK
     Route: 048
     Dates: start: 20151127, end: 20151129
  11. BONOTEO [Concomitant]
     Active Substance: MINODRONIC ACID
     Indication: OSTEOPOROSIS
     Dosage: 50 MG, UNK
     Route: 048
     Dates: start: 20130206
  12. EDIROL [Concomitant]
     Active Substance: ELDECALCITOL
     Indication: OSTEOPOROSIS
     Dosage: 0.75 UG, UNK
     Route: 048
     Dates: start: 20131120
  13. NEUROTROPIN                        /00398601/ [Concomitant]
     Active Substance: CYANOCOBALAMIN\LIDOCAINE HYDROCHLORIDE\PYRIDOXINE HYDROCHLORIDE\THIAMINE HYDROCHLORIDE
     Indication: PAIN
     Dosage: 2 DF, BID
     Route: 048
     Dates: start: 20151128
  14. SOVALDI [Suspect]
     Active Substance: SOFOSBUVIR
     Indication: CHRONIC HEPATITIS C
     Dosage: 400 MG, MORNING
     Route: 048
     Dates: start: 20150910, end: 20151125
  15. COPEGUS [Suspect]
     Active Substance: RIBAVIRIN
     Dosage: 200 MG, BID
     Route: 048
     Dates: start: 20151127, end: 20151129
  16. DIAZEPAM. [Concomitant]
     Active Substance: DIAZEPAM
     Indication: INSOMNIA
     Dosage: 2 MG, UNK
     Route: 048
     Dates: start: 20150325, end: 20151128
  17. PATANOL [Concomitant]
     Active Substance: OLOPATADINE HYDROCHLORIDE
     Indication: CONJUNCTIVITIS ALLERGIC
     Dosage: 4 TO 8 DROPS, QID
     Route: 031
     Dates: start: 20140220

REACTIONS (8)
  - Back pain [Recovered/Resolved]
  - Abdominal pain lower [Recovered/Resolved]
  - Weight decreased [Unknown]
  - Abdominal pain upper [Recovered/Resolved]
  - Intercostal neuralgia [Recovered/Resolved]
  - Dementia [Recovered/Resolved]
  - Delirium [Recovered/Resolved]
  - Treatment noncompliance [Recovered/Resolved]

NARRATIVE: CASE EVENT DATE: 201511
